FAERS Safety Report 4854223-8 (Version None)
Quarter: 2005Q4

REPORT INFORMATION
  Report Type: 
  Country: None (occurrence: None)
  Receive Date: 20051213
  Receipt Date: 20051209
  Transmission Date: 20060501
  Serious: Yes (Death)
  Sender: FDA-Public Use
  Company Number: 200511767BWH

PATIENT

DRUGS (1)
  1. APROTININ [Suspect]
     Dosage: INTRAVENOUS
     Route: 042
     Dates: start: 20050701

REACTIONS (2)
  - AORTIC THROMBOSIS [None]
  - PROCEDURAL COMPLICATION [None]
